FAERS Safety Report 8042604-3 (Version None)
Quarter: 2012Q1

REPORT INFORMATION
  Report Type: 
  Country: None (occurrence: None)
  Receive Date: 20120112
  Receipt Date: 20120104
  Transmission Date: 20120608
  Serious: Yes (Other)
  Sender: FDA-Public Use
  Company Number: SE-AMGEN-SWESP2011066845

PATIENT
  Age: 55 Year
  Sex: Female

DRUGS (6)
  1. ORUDIS [Concomitant]
     Dosage: 200 MG, 1X/DAY
  2. OMEPRAZOLE [Concomitant]
     Dosage: 20 MG, 1X/DAY
  3. ENBREL [Suspect]
     Indication: PSORIATIC ARTHROPATHY
     Dosage: 50 MG, WEEKLY
     Route: 058
     Dates: start: 20111122, end: 20111206
  4. TRAMADOL HCL [Concomitant]
     Dosage: 50 MG, 3X/DAY
  5. ADALAT [Concomitant]
     Dosage: 20 MG, 1X/DAY
  6. BETNOVAT                           /00008501/ [Concomitant]
     Dosage: 1 DF, 2X/DAY

REACTIONS (12)
  - NERVOUSNESS [None]
  - SWOLLEN TONGUE [None]
  - FATIGUE [None]
  - DYSPNOEA [None]
  - MALAISE [None]
  - PARAESTHESIA [None]
  - SENSATION OF HEAVINESS [None]
  - FEELING HOT [None]
  - FALL [None]
  - JOINT INJURY [None]
  - HYPERSENSITIVITY [None]
  - PARAESTHESIA ORAL [None]
